FAERS Safety Report 4327095-8 (Version None)
Quarter: 2004Q1

REPORT INFORMATION
  Report Type: 
  Country: None (occurrence: None)
  Receive Date: 20040322
  Receipt Date: 20031208
  Transmission Date: 20041129
  Serious: No
  Sender: FDA-Public Use
  Company Number: US-JNJFOC-20031202404

PATIENT
  Age: 30 Year
  Sex: Female
  Weight: 98.4306 kg

DRUGS (3)
  1. ORTHO TRI-CYCLEN LO [Suspect]
     Indication: CONTRACEPTION
     Dosage: 1 DOSE (S), 1 IN 1 DAY, ORAL
     Route: 048
     Dates: start: 20031128, end: 20031207
  2. FLAGYL [Concomitant]
  3. MURAD (ANTI-ACNE PREPARATIONS FOR TOPICAL USE [Concomitant]

REACTIONS (3)
  - BREAST TENDERNESS [None]
  - CHLOASMA [None]
  - NAUSEA [None]
